FAERS Safety Report 15942608 (Version 2)
Quarter: 2019Q1

REPORT INFORMATION
  Report Type: Spontaneous
  Country: US (occurrence: US)
  Receive Date: 20190209
  Receipt Date: 20190220
  Transmission Date: 20190417
  Serious: Yes (Other)
  Sender: FDA-Public Use
  Company Number: US-ASTRAZENECA-2018SF26205

PATIENT
  Sex: Female

DRUGS (15)
  1. VIMOVO [Suspect]
     Active Substance: ESOMEPRAZOLE MAGNESIUM\NAPROXEN
     Route: 048
     Dates: start: 2011, end: 2018
  2. TRAMADOL. [Concomitant]
     Active Substance: TRAMADOL
  3. ZINC. [Concomitant]
     Active Substance: ZINC
  4. NEXIUM [Suspect]
     Active Substance: ESOMEPRAZOLE MAGNESIUM
     Route: 048
     Dates: start: 20111005
  5. FISH OIL [Concomitant]
     Active Substance: FISH OIL
  6. NEXIUM [Suspect]
     Active Substance: ESOMEPRAZOLE MAGNESIUM
     Route: 048
     Dates: start: 2011, end: 2018
  7. VITAMIN B12 [Concomitant]
     Active Substance: CYANOCOBALAMIN
  8. TRICOR [Concomitant]
     Active Substance: FENOFIBRATE
  9. VITAMIN D [Concomitant]
     Active Substance: CHOLECALCIFEROL
  10. NIACIN. [Concomitant]
     Active Substance: NIACIN
  11. LISINOPRIL. [Concomitant]
     Active Substance: LISINOPRIL
  12. FOLIC ACID. [Concomitant]
     Active Substance: FOLIC ACID
  13. ACIPHEX [Suspect]
     Active Substance: RABEPRAZOLE SODIUM
     Route: 065
     Dates: start: 2011, end: 2018
  14. ASPIRIN. [Concomitant]
     Active Substance: ASPIRIN
  15. CYANOCOBALAMIN. [Concomitant]
     Active Substance: CYANOCOBALAMIN

REACTIONS (1)
  - Chronic kidney disease [Unknown]
